FAERS Safety Report 25136017 (Version 1)
Quarter: 2025Q1

REPORT INFORMATION
  Report Type: Spontaneous
  Country: JP (occurrence: JP)
  Receive Date: 20250328
  Receipt Date: 20250328
  Transmission Date: 20250409
  Serious: Yes (Hospitalization)
  Sender: AMGEN
  Company Number: JP-AMGEN-JPNSP2025057056

PATIENT
  Age: 75 Year

DRUGS (1)
  1. BLINCYTO [Suspect]
     Active Substance: BLINATUMOMAB
     Indication: Acute lymphocytic leukaemia
     Route: 040
     Dates: start: 20241030, end: 20241230

REACTIONS (2)
  - Disease progression [Not Recovered/Not Resolved]
  - Central nervous system leukaemia [Not Recovered/Not Resolved]

NARRATIVE: CASE EVENT DATE: 20241230
